FAERS Safety Report 9305518 (Version 1)
Quarter: 2013Q2

REPORT INFORMATION
  Report Type: Spontaneous
  Country: US (occurrence: None)
  Receive Date: 20130522
  Receipt Date: 20130522
  Transmission Date: 20140414
  Serious: No
  Sender: FDA-Public Use
  Company Number: None

PATIENT
  Age: 50 Year
  Sex: Male

DRUGS (1)
  1. TEMODAR [Suspect]
     Indication: SPINAL CORD NEOPLASM
     Dosage: 270MG, PO, QDX 7DS ON 7DS O
     Route: 048
     Dates: start: 201207, end: 20130430

REACTIONS (3)
  - Insomnia [None]
  - Oedema [None]
  - Spinal pain [None]
